FAERS Safety Report 7536930-1 (Version None)
Quarter: 2011Q2

REPORT INFORMATION
  Report Type: 
  Country: None (occurrence: None)
  Receive Date: 20110609
  Receipt Date: 20110524
  Transmission Date: 20111010
  Serious: Yes (Hospitalization, Other)
  Sender: FDA-Public Use
  Company Number: US-BAYER-201019724NA

PATIENT
  Age: 37 Year
  Sex: Female
  Weight: 75 kg

DRUGS (7)
  1. YAZ [Suspect]
     Route: 048
  2. TRAMADOL HCL [Concomitant]
     Indication: PAIN
     Dosage: 50 MG, ONE PRN
     Route: 048
  3. YASMIN [Suspect]
     Dosage: UNK
     Route: 048
     Dates: start: 20000101
  4. LIDODERM [Concomitant]
     Dosage: UNK
     Dates: start: 20091010
  5. PRILOSEC [Concomitant]
     Indication: GASTROOESOPHAGEAL REFLUX DISEASE
     Dosage: UNK UNK, QD
     Route: 048
  6. OXYCODONE HCL [Concomitant]
     Indication: PAIN
     Dosage: UNK UNK, PRN
     Route: 048
     Dates: start: 20091010
  7. COLACE [Concomitant]
     Indication: CONSTIPATION
     Dosage: 100 MG, BID
     Route: 048
     Dates: start: 20091010

REACTIONS (3)
  - INJURY [None]
  - HAEMANGIOMA OF LIVER [None]
  - CHOLECYSTITIS CHRONIC [None]
